FAERS Safety Report 6199539-0 (Version None)
Quarter: 2009Q2

REPORT INFORMATION
  Report Type: 
  Country: None (occurrence: None)
  Receive Date: 20090522
  Receipt Date: 20090515
  Transmission Date: 20091009
  Serious: Yes (Hospitalization, Other)
  Sender: FDA-Public Use
  Company Number: A0784891A

PATIENT
  Sex: Female
  Weight: 69 kg

DRUGS (6)
  1. ELTROMBOPAG [Suspect]
     Indication: THROMBOCYTOPENIA
     Dosage: 75MG PER DAY
     Route: 048
     Dates: start: 20090505
  2. PEGASYS [Suspect]
     Dosage: 180MCG WEEKLY
     Route: 058
     Dates: start: 20090505
  3. COPEGUS [Suspect]
     Indication: THROMBOCYTOPENIA
     Route: 048
     Dates: start: 20090505
  4. ELTROMBOPAG [Suspect]
     Route: 048
     Dates: start: 20090320, end: 20090505
  5. CALCIUM CARBONATE [Concomitant]
     Indication: OSTEOPOROSIS
     Dosage: 500MG PER DAY
     Route: 048
     Dates: start: 20070101
  6. SODIUM CHLORIDE [Concomitant]
     Indication: DEHYDRATION
     Dosage: 500ML CONTINUOUS
     Route: 042
     Dates: start: 20090514

REACTIONS (6)
  - ACUTE ABDOMEN [None]
  - COLITIS [None]
  - DEHYDRATION [None]
  - DIARRHOEA [None]
  - NEUTROPENIA [None]
  - PYREXIA [None]
